FAERS Safety Report 5479472-X (Version None)
Quarter: 2007Q3

REPORT INFORMATION
  Report Type: 
  Country: None (occurrence: None)
  Receive Date: 20070913
  Receipt Date: 20061129
  Transmission Date: 20080115
  Serious: Yes (Other)
  Sender: FDA-Public Use
  Company Number: 32604

PATIENT
  Age: 71 Year
  Sex: Female
  Weight: 56.6996 kg

DRUGS (4)
  1. PACLITAXEL [Suspect]
     Indication: BREAST CANCER
     Dates: start: 20061001
  2. HERCEPTIN [Concomitant]
  3. PROCRIT [Concomitant]
  4. ASTHMA INHALERS [Concomitant]

REACTIONS (2)
  - ASTHENIA [None]
  - URINARY TRACT INFECTION [None]
